FAERS Safety Report 14390179 (Version 2)
Quarter: 2018Q1

REPORT INFORMATION
  Report Type: Report from Study
  Country: None (occurrence: US)
  Receive Date: 20180116
  Receipt Date: 20180130
  Transmission Date: 20180509
  Serious: Yes (Other)
  Sender: FDA-Public Use
  Company Number: US-ABBVIE-18K-163-2220379-00

PATIENT
  Age: 57 Year
  Sex: Female

DRUGS (1)
  1. HUMIRA [Suspect]
     Active Substance: ADALIMUMAB
     Indication: PRODUCT USED FOR UNKNOWN INDICATION
     Route: 058
     Dates: start: 2013

REACTIONS (9)
  - Crohn^s disease [Unknown]
  - Complication associated with device [Recovered/Resolved]
  - Device issue [Unknown]
  - Large intestinal obstruction [Unknown]
  - Pneumothorax [Unknown]
  - Coma [Unknown]
  - Large intestinal obstruction [Recovered/Resolved]
  - Intestinal prolapse [Recovered/Resolved]
  - Device dislocation [Recovered/Resolved]

NARRATIVE: CASE EVENT DATE: 2016
